FAERS Safety Report 10934837 (Version 3)
Quarter: 2015Q4

REPORT INFORMATION
  Report Type: Spontaneous
  Country: US (occurrence: US)
  Receive Date: 20150320
  Receipt Date: 20151001
  Transmission Date: 20160304
  Serious: Yes (Other)
  Sender: FDA-Public Use
  Company Number: US-CELGENEUS-USA-2015012759

PATIENT
  Sex: Male

DRUGS (6)
  1. HYZAAR [Concomitant]
     Active Substance: HYDROCHLOROTHIAZIDE\LOSARTAN POTASSIUM
     Indication: HYPERTENSION
     Dosage: 100/25MG
     Route: 065
  2. REVLIMID [Suspect]
     Active Substance: LENALIDOMIDE
     Route: 048
     Dates: start: 201409, end: 20150109
  3. COREG [Concomitant]
     Active Substance: CARVEDILOL
     Indication: CORONARY ARTERY DISEASE
     Route: 065
  4. ATROVENT [Concomitant]
     Active Substance: IPRATROPIUM BROMIDE
     Indication: CHRONIC OBSTRUCTIVE PULMONARY DISEASE
     Route: 065
  5. LIPITOR [Concomitant]
     Active Substance: ATORVASTATIN CALCIUM
     Indication: LIPIDS INCREASED
     Route: 065
  6. REVLIMID [Suspect]
     Active Substance: LENALIDOMIDE
     Indication: B-CELL LYMPHOMA
     Route: 048
     Dates: start: 20140623

REACTIONS (5)
  - Anaemia [Unknown]
  - Dysphonia [Recovered/Resolved]
  - Fatigue [Recovering/Resolving]
  - Multiple allergies [Recovered/Resolved]
  - Pneumonia pseudomonal [Unknown]
